FAERS Safety Report 9235389 (Version 1)
Quarter: 2013Q2

REPORT INFORMATION
  Report Type: Spontaneous
  Country: AT (occurrence: AT)
  Receive Date: 20130417
  Receipt Date: 20130417
  Transmission Date: 20140414
  Serious: Yes (Other)
  Sender: FDA-Public Use
  Company Number: AT-AMGEN-AUTSP2013026308

PATIENT
  Sex: Male
  Weight: 114 kg

DRUGS (5)
  1. ENBREL [Suspect]
     Indication: RHEUMATOID ARTHRITIS
     Dosage: 50 MG, ONCE EVERY TWO WEEKS
     Dates: start: 201207
  2. SIMVASTATIN [Concomitant]
     Dosage: UNK
  3. LISINOPRIL [Concomitant]
     Dosage: UNK
  4. GLUCOPHAGE [Concomitant]
     Dosage: UNK
  5. AMLODIPINE [Concomitant]
     Dosage: UNK

REACTIONS (1)
  - Epistaxis [Recovered/Resolved]
